FAERS Safety Report 9735163 (Version 1)
Quarter: 2013Q4

REPORT INFORMATION
  Report Type: Spontaneous
  Country: US (occurrence: None)
  Receive Date: 20131205
  Receipt Date: 20131205
  Transmission Date: 20140711
  Serious: No
  Sender: FDA-Public Use
  Company Number: None

PATIENT
  Age: 80 Year
  Sex: Female
  Weight: 60.78 kg

DRUGS (1)
  1. CALCITONIN SALMON [Suspect]
     Indication: BLOOD CALCIUM DECREASED
     Dosage: 1 SPRAY NASALLY; ONCE DAILY; INHALATION
     Route: 045
     Dates: start: 20131201, end: 20131202

REACTIONS (4)
  - Product quality issue [None]
  - Product substitution issue [None]
  - Product odour abnormal [None]
  - Nausea [None]
